FAERS Safety Report 4435177-5 (Version None)
Quarter: 2004Q3

REPORT INFORMATION
  Report Type: 
  Country: None (occurrence: None)
  Receive Date: 20040827
  Receipt Date: 20040818
  Transmission Date: 20050211
  Serious: Yes (Other)
  Sender: FDA-Public Use
  Company Number: GB-ROCHE-378163

PATIENT
  Age: 62 Year
  Sex: Female

DRUGS (2)
  1. KYTRIL [Suspect]
     Indication: DRUG USE FOR UNKNOWN INDICATION
     Route: 042
  2. MIDAZOLAM HCL [Concomitant]
     Route: 065

REACTIONS (1)
  - CARDIAC ARREST [None]
